FAERS Safety Report 5638111-5 (Version None)
Quarter: 2008Q1

REPORT INFORMATION
  Report Type: 
  Country: None (occurrence: None)
  Receive Date: 20080221
  Receipt Date: 20080205
  Transmission Date: 20080703
  Serious: Yes (Other)
  Sender: FDA-Public Use
  Company Number: 08-000246

PATIENT
  Age: 24 Year
  Sex: Female

DRUGS (2)
  1. TILIA FE(ETHINYL ESTRADIOL, NORETHINDRONE ACETATE) TABLET [Suspect]
     Indication: CONTRACEPTION
     Dosage: 20/30/35-1000 UG, QD, ORAL
     Route: 048
     Dates: start: 20080127, end: 20080206
  2. ESTROSTEP (ETHINYL ESTRADIOL, NORETH INDRONE ACETATE) TABLET [Concomitant]

REACTIONS (1)
  - ANAPHYLACTIC SHOCK [None]
